FAERS Safety Report 7754442-7 (Version None)
Quarter: 2011Q3

REPORT INFORMATION
  Report Type: 
  Country: None (occurrence: None)
  Receive Date: 20110915
  Receipt Date: 20110914
  Transmission Date: 20111222
  Serious: Yes (Hospitalization, Other)
  Sender: FDA-Public Use
  Company Number: US-PFIZER INC-2011196044

PATIENT
  Sex: Female
  Weight: 88.435 kg

DRUGS (1)
  1. DETROL LA [Suspect]
     Indication: HYPERTONIC BLADDER
     Dosage: 4 MG, 1X/DAY
     Route: 048
     Dates: start: 20040101, end: 20110601

REACTIONS (7)
  - HYPERTENSION [None]
  - INFECTIOUS PERITONITIS [None]
  - HERNIA [None]
  - ATRIAL FIBRILLATION [None]
  - UPPER LIMB FRACTURE [None]
  - ROAD TRAFFIC ACCIDENT [None]
  - SEPSIS [None]
